FAERS Safety Report 9633547 (Version 1)
Quarter: 2013Q4

REPORT INFORMATION
  Report Type: Spontaneous
  Country: FR (occurrence: FR)
  Receive Date: 20131021
  Receipt Date: 20131021
  Transmission Date: 20140711
  Serious: Yes (Other)
  Sender: FDA-Public Use
  Company Number: PHHY2013FR117824

PATIENT
  Sex: 0

DRUGS (1)
  1. CERTICAN [Suspect]
     Dosage: AT LEAST FOR 6 MONTHS

REACTIONS (1)
  - Atrioventricular block first degree [Unknown]
